FAERS Safety Report 19998699 (Version 6)
Quarter: 2022Q1

REPORT INFORMATION
  Report Type: Spontaneous
  Country: JP (occurrence: JP)
  Receive Date: 20211027
  Receipt Date: 20220120
  Transmission Date: 20220423
  Serious: Yes (Hospitalization, Other)
  Sender: FDA-Public Use
  Company Number: JP-BRISTOL-MYERS SQUIBB COMPANY-BMS-2021-092436

PATIENT
  Age: 57 Year

DRUGS (2)
  1. YERVOY [Suspect]
     Active Substance: IPILIMUMAB
     Indication: Non-small cell lung cancer
     Dosage: UNK
     Route: 041
  2. OPDIVO [Suspect]
     Active Substance: NIVOLUMAB
     Indication: Non-small cell lung cancer
     Dosage: UNK
     Route: 041

REACTIONS (4)
  - Pericardial effusion [Recovering/Resolving]
  - Pericarditis [Not Recovered/Not Resolved]
  - Decreased appetite [Recovering/Resolving]
  - Nausea [Recovering/Resolving]

NARRATIVE: CASE EVENT DATE: 20210801
